FAERS Safety Report 5796310-6 (Version None)
Quarter: 2008Q2

REPORT INFORMATION
  Report Type: 
  Country: None (occurrence: None)
  Receive Date: 20080626
  Receipt Date: 20080613
  Transmission Date: 20081010
  Serious: Yes (Other)
  Sender: FDA-Public Use
  Company Number: 235685J08USA

PATIENT
  Age: 29 Year
  Sex: Male
  Weight: 92.9874 kg

DRUGS (2)
  1. REBIF [Suspect]
     Indication: MULTIPLE SCLEROSIS
     Dosage: 44 MCG, 3 IN 1 WEEKS, SUBCUTANEOUS
     Route: 058
     Dates: start: 20051101
  2. STEROIDS (CORTICOSTEROIDS) [Suspect]
     Indication: MULTIPLE SCLEROSIS
     Dosage: 1 IN 2 WEEKS
     Dates: start: 20050801

REACTIONS (3)
  - HIP FRACTURE [None]
  - IMPAIRED HEALING [None]
  - INJECTION SITE PAIN [None]
